FAERS Safety Report 7933949-3 (Version None)
Quarter: 2011Q4

REPORT INFORMATION
  Report Type: 
  Country: None (occurrence: None)
  Receive Date: 20111122
  Receipt Date: 20111111
  Transmission Date: 20120403
  Serious: Yes (Other)
  Sender: FDA-Public Use
  Company Number: US-JNJFOC-20111105372

PATIENT
  Sex: Female
  Weight: 77.11 kg

DRUGS (2)
  1. REMICADE [Suspect]
     Indication: RHEUMATOID ARTHRITIS
     Route: 042
     Dates: start: 20100101
  2. UNSPECIFED MEDICATIONS [Concomitant]
     Route: 065

REACTIONS (3)
  - DEPRESSION [None]
  - TACHYPHRENIA [None]
  - FEELING ABNORMAL [None]
